FAERS Safety Report 9379882 (Version 2)
Quarter: 2013Q3

REPORT INFORMATION
  Report Type: Spontaneous
  Country: ZA (occurrence: ZA)
  Receive Date: 20130702
  Receipt Date: 20130801
  Transmission Date: 20140515
  Serious: Yes (Other)
  Sender: FDA-Public Use
  Company Number: ZA-ELI_LILLY_AND_COMPANY-ZA201212002203

PATIENT
  Age: 21 Year
  Sex: Female
  Weight: 80 kg

DRUGS (4)
  1. HUMALOG LISPRO [Suspect]
     Indication: TYPE 1 DIABETES MELLITUS
     Dosage: 18 U, TID
     Route: 058
     Dates: start: 201103
  2. HUMALOG LISPRO [Suspect]
     Dosage: 20 IU, TID
     Route: 058
  3. LANTUS [Concomitant]
     Indication: DIABETES MELLITUS
     Dosage: 40 IU, QD
  4. LANTUS [Concomitant]
     Dosage: 38 U, EACH EVENING
     Route: 058

REACTIONS (4)
  - Protein urine present [Recovered/Resolved]
  - Labour pain [Recovered/Resolved]
  - Exposure during pregnancy [Recovered/Resolved]
  - Hypertension [Recovered/Resolved]
